FAERS Safety Report 5568298-4 (Version None)
Quarter: 2007Q4

REPORT INFORMATION
  Report Type: 
  Country: None (occurrence: None)
  Receive Date: 20071220
  Receipt Date: 20071212
  Transmission Date: 20080405
  Serious: Yes (Other)
  Sender: FDA-Public Use
  Company Number: US-JNJFOC-20071203384

PATIENT
  Sex: Male
  Weight: 49.9 kg

DRUGS (1)
  1. REMICADE [Suspect]
     Indication: COLITIS ULCERATIVE
     Dosage: 5 DOSES
     Route: 041

REACTIONS (2)
  - DRUG INEFFECTIVE [None]
  - IMPAIRED GASTRIC EMPTYING [None]
